FAERS Safety Report 18617413 (Version 1)
Quarter: 2020Q4

REPORT INFORMATION
  Report Type: Spontaneous
  Country: JP (occurrence: JP)
  Receive Date: 20201215
  Receipt Date: 20201215
  Transmission Date: 20210114
  Serious: Yes (Other)
  Sender: FDA-Public Use
  Company Number: NVSJ2020JP009135

PATIENT
  Age: 91 Year
  Sex: Female
  Weight: 50.6 kg

DRUGS (4)
  1. BEOVU [Suspect]
     Active Substance: BROLUCIZUMAB-DBLL
     Indication: NEOVASCULAR AGE-RELATED MACULAR DEGENERATION
     Dosage: 6 MG
     Route: 031
     Dates: start: 20200807, end: 20200807
  2. AFLIBERCEPT [Suspect]
     Active Substance: AFLIBERCEPT
     Indication: PRODUCT USED FOR UNKNOWN INDICATION
     Dosage: 1ST-46TH
     Route: 031
  3. AFLIBERCEPT [Suspect]
     Active Substance: AFLIBERCEPT
     Dosage: 47TH (LAST)
     Route: 031
     Dates: start: 20200710, end: 20200710
  4. AFLIBERCEPT [Suspect]
     Active Substance: AFLIBERCEPT
     Dosage: UNK
     Route: 031
     Dates: start: 20201118, end: 20201118

REACTIONS (5)
  - Vitreous opacities [Unknown]
  - Disease recurrence [Unknown]
  - Vitreal cells [Unknown]
  - Uveitis [Not Recovered/Not Resolved]
  - Serous retinal detachment [Unknown]

NARRATIVE: CASE EVENT DATE: 20200915
